FAERS Safety Report 16469913 (Version 1)
Quarter: 2019Q2

REPORT INFORMATION
  Report Type: Report from Study
  Country: US (occurrence: US)
  Receive Date: 20190624
  Receipt Date: 20190624
  Transmission Date: 20190711
  Serious: Yes (Other)
  Sender: FDA-Public Use
  Company Number: US-ROCHE-2336846

PATIENT
  Sex: Female

DRUGS (26)
  1. TRILEPTAL [Concomitant]
     Active Substance: OXCARBAZEPINE
     Route: 048
  2. ADDERALL [Concomitant]
     Active Substance: AMPHETAMINE ASPARTATE\AMPHETAMINE SULFATE\DEXTROAMPHETAMINE SACCHARATE\DEXTROAMPHETAMINE SULFATE
     Route: 048
  3. ALPRAZOLAM. [Concomitant]
     Active Substance: ALPRAZOLAM
     Route: 048
  4. NATURE-THROID [Concomitant]
     Active Substance: THYROID, PORCINE
     Route: 048
  5. PLAQUENIL [Concomitant]
     Active Substance: HYDROXYCHLOROQUINE SULFATE
     Route: 048
  6. FISH OIL [Concomitant]
     Active Substance: FISH OIL
     Route: 065
  7. VITAMIN C [Concomitant]
     Active Substance: ASCORBIC ACID
     Route: 065
  8. DHEA [Concomitant]
     Active Substance: PRASTERONE
     Route: 065
  9. COENZYME Q10 [Concomitant]
     Active Substance: UBIDECARENONE
     Route: 048
  10. PERCOCET [Concomitant]
     Active Substance: ACETAMINOPHEN\OXYCODONE HYDROCHLORIDE
     Route: 065
  11. OTEZLA [Concomitant]
     Active Substance: APREMILAST
     Route: 065
  12. IBUPROFEN. [Concomitant]
     Active Substance: IBUPROFEN
     Route: 065
  13. PRIMROSE OIL [Concomitant]
     Route: 065
  14. PAROXETINE. [Concomitant]
     Active Substance: PAROXETINE
     Route: 065
  15. PROGESTERONE. [Concomitant]
     Active Substance: PROGESTERONE
     Route: 065
  16. CARBAMAZEPINE. [Concomitant]
     Active Substance: CARBAMAZEPINE
     Route: 048
  17. CARBAMAZEPINE. [Concomitant]
     Active Substance: CARBAMAZEPINE
     Route: 065
  18. GRALISE [Concomitant]
     Active Substance: GABAPENTIN
     Route: 048
  19. TURMERIC [CURCUMA LONGA] [Concomitant]
     Route: 048
  20. SOLU-MEDROL [Concomitant]
     Active Substance: METHYLPREDNISOLONE SODIUM SUCCINATE
  21. OCREVUS [Suspect]
     Active Substance: OCRELIZUMAB
     Indication: RELAPSING-REMITTING MULTIPLE SCLEROSIS
     Route: 042
  22. MIRAPEX [Concomitant]
     Active Substance: PRAMIPEXOLE DIHYDROCHLORIDE
     Route: 048
  23. ESTRADIOL. [Concomitant]
     Active Substance: ESTRADIOL
     Route: 048
  24. VESICARE [Concomitant]
     Active Substance: SOLIFENACIN SUCCINATE
     Route: 048
  25. ELAVIL [Concomitant]
     Active Substance: AMITRIPTYLINE HYDROCHLORIDE
     Route: 048
  26. PAXIL [Concomitant]
     Active Substance: PAROXETINE HYDROCHLORIDE
     Route: 048

REACTIONS (3)
  - Infectious mononucleosis [Unknown]
  - Urinary tract infection [Unknown]
  - Herpes zoster [Unknown]
